FAERS Safety Report 13182135 (Version 1)
Quarter: 2017Q1

REPORT INFORMATION
  Report Type: Spontaneous
  Country: US (occurrence: US)
  Receive Date: 20170202
  Receipt Date: 20170202
  Transmission Date: 20170428
  Serious: Yes (Other)
  Sender: FDA-Public Use
  Company Number: US-LUNDBECK-DKLU2025697

PATIENT
  Sex: Male

DRUGS (1)
  1. NORTHERA [Suspect]
     Active Substance: DROXIDOPA
     Indication: PRODUCT USED FOR UNKNOWN INDICATION
     Route: 065

REACTIONS (10)
  - Loss of consciousness [Unknown]
  - Gait disturbance [Unknown]
  - Asthenia [Unknown]
  - Mobility decreased [Unknown]
  - Activities of daily living impaired [Unknown]
  - Condition aggravated [Unknown]
  - Dizziness [Unknown]
  - Syncope [Unknown]
  - Orthostatic hypotension [Unknown]
  - Fall [Unknown]
